FAERS Safety Report 5453179-7 (Version None)
Quarter: 2007Q3

REPORT INFORMATION
  Report Type: 
  Country: None (occurrence: None)
  Receive Date: 20070914
  Receipt Date: 20070904
  Transmission Date: 20080115
  Serious: Yes (Hospitalization)
  Sender: FDA-Public Use
  Company Number: FR-PFIZER INC-2007074594

PATIENT
  Sex: Female

DRUGS (3)
  1. AZITHROMYCIN [Suspect]
     Indication: EYE INFECTION TOXOPLASMAL
     Route: 048
     Dates: start: 20070627, end: 20070711
  2. PYRIMETHAMINE [Suspect]
     Indication: EYE INFECTION TOXOPLASMAL
     Route: 048
     Dates: start: 20070627, end: 20070710
  3. CALCIUM FOLINATE [Suspect]
     Indication: EYE INFECTION TOXOPLASMAL
     Route: 048
     Dates: start: 20070627, end: 20070710

REACTIONS (1)
  - GRAND MAL CONVULSION [None]
